FAERS Safety Report 13740227 (Version 1)
Quarter: 2017Q3

REPORT INFORMATION
  Report Type: Spontaneous
  Country: US (occurrence: US)
  Receive Date: 20170710
  Receipt Date: 20170710
  Transmission Date: 20171127
  Serious: Yes (Other)
  Sender: FDA-Public Use
  Company Number: None

PATIENT
  Age: 40 Year
  Sex: Female
  Weight: 81 kg

DRUGS (9)
  1. THRIVE [Concomitant]
     Active Substance: NICOTINE
  2. CYMBALTA [Suspect]
     Active Substance: DULOXETINE HYDROCHLORIDE
     Indication: DEPRESSION
     Dosage: ?          QUANTITY:1 CAPSULE(S);?
     Route: 048
     Dates: start: 20170414, end: 20170706
  3. LISINOPRIL. [Concomitant]
     Active Substance: LISINOPRIL
  4. ALEVE [Concomitant]
     Active Substance: NAPROXEN SODIUM
  5. MELATONIN [Concomitant]
     Active Substance: MELATONIN
  6. CLONAZEPAM. [Concomitant]
     Active Substance: CLONAZEPAM
  7. FLUOXETINE [Concomitant]
     Active Substance: FLUOXETINE HYDROCHLORIDE
  8. ASPRIN [Concomitant]
     Active Substance: ASPIRIN
  9. ESOMEPRAZOLE [Concomitant]
     Active Substance: ESOMEPRAZOLE

REACTIONS (11)
  - Fatigue [None]
  - Narcolepsy [None]
  - Depression [None]
  - Diarrhoea [None]
  - Insomnia [None]
  - Suicidal ideation [None]
  - Impaired driving ability [None]
  - Paraesthesia [None]
  - Mood swings [None]
  - Vertigo [None]
  - Dizziness [None]

NARRATIVE: CASE EVENT DATE: 20170527
